FAERS Safety Report 11493108 (Version 13)
Quarter: 2017Q1

REPORT INFORMATION
  Report Type: Report from Study
  Country: CA (occurrence: CA)
  Receive Date: 20150911
  Receipt Date: 20170201
  Transmission Date: 20170428
  Serious: Yes (Hospitalization, Other)
  Sender: FDA-Public Use
  Company Number: CA-ROCHE-1507794

PATIENT
  Age: 66 Year
  Sex: Female
  Weight: 90 kg

DRUGS (12)
  1. ACETAMINOPHEN. [Concomitant]
     Active Substance: ACETAMINOPHEN
     Indication: PREMEDICATION
     Route: 048
     Dates: start: 20141127
  2. RITUXAN [Suspect]
     Active Substance: RITUXIMAB
     Indication: SCLERODERMA
     Dosage: 2 WEEKS
     Route: 042
     Dates: start: 20141127
  3. METHYLPREDNISOLONE. [Concomitant]
     Active Substance: METHYLPREDNISOLONE
     Indication: PREMEDICATION
     Route: 042
     Dates: start: 20141127
  4. DILTIAZEM. [Concomitant]
     Active Substance: DILTIAZEM
  5. OXYGEN. [Concomitant]
     Active Substance: OXYGEN
     Dosage: NASAL PRONG (3-10L DEPENDING ON MOVEMENT)
     Route: 065
     Dates: start: 20140820
  6. MS CONTIN [Concomitant]
     Active Substance: MORPHINE SULFATE
  7. RITUXAN [Suspect]
     Active Substance: RITUXIMAB
     Indication: INTERSTITIAL LUNG DISEASE
  8. DIPHENHYDRAMINE. [Concomitant]
     Active Substance: DIPHENHYDRAMINE
     Indication: PREMEDICATION
     Route: 048
     Dates: start: 20141127
  9. MORPHINE [Concomitant]
     Active Substance: MORPHINE
  10. FELODIPINE. [Concomitant]
     Active Substance: FELODIPINE
  11. CYCLOPHOSPHAMIDE. [Concomitant]
     Active Substance: CYCLOPHOSPHAMIDE
     Dosage: BRIDGE UNTIL STARTS RITUXAN (HAS TRIED AZATHIOPRIN)
     Route: 065
  12. PREDNISONE. [Concomitant]
     Active Substance: PREDNISONE
     Route: 065

REACTIONS (31)
  - Pulmonary fibrosis [Unknown]
  - Limb injury [Unknown]
  - Haemoglobin decreased [Unknown]
  - Breast cancer [Unknown]
  - Weight increased [Not Recovered/Not Resolved]
  - Cough [Recovering/Resolving]
  - Scleroderma [Recovered/Resolved]
  - International normalised ratio decreased [Unknown]
  - Pneumonia [Recovered/Resolved]
  - Nausea [Recovered/Resolved]
  - Cough [Recovering/Resolving]
  - Blood pressure diastolic increased [Unknown]
  - Dyspnoea exertional [Unknown]
  - Ligament sprain [Unknown]
  - Wheezing [Recovering/Resolving]
  - Metastasis [Unknown]
  - Blood pressure fluctuation [Unknown]
  - Nasopharyngitis [Recovering/Resolving]
  - Headache [Recovering/Resolving]
  - Headache [Unknown]
  - Infusion related reaction [Unknown]
  - Pain [Recovered/Resolved]
  - Lower respiratory tract infection [Recovering/Resolving]
  - Blood pressure increased [Unknown]
  - Off label use [Unknown]
  - Headache [Recovered/Resolved]
  - Heart rate decreased [Unknown]
  - Heart rate increased [Unknown]
  - Vein disorder [Unknown]
  - Diarrhoea [Recovering/Resolving]
  - Chest discomfort [Recovering/Resolving]

NARRATIVE: CASE EVENT DATE: 20141129
